FAERS Safety Report 4280436-2 (Version None)
Quarter: 2004Q1

REPORT INFORMATION
  Report Type: 
  Country: None (occurrence: None)
  Receive Date: 20040126
  Receipt Date: 20040115
  Transmission Date: 20041129
  Serious: Yes (Death)
  Sender: FDA-Public Use
  Company Number: 002#4#2004-00007 (0)

PATIENT
  Sex: Female

DRUGS (5)
  1. CHLORPHENIRAMINE MALEATE AND PHENYLPROPANOLAMINE HCL [Suspect]
     Dosage: ORAL
     Route: 048
  2. DIMETAPP [Suspect]
     Dosage: ORAL
  3. DIBROMM-ELIXIR [Suspect]
     Dosage: ORAL
     Route: 048
  4. ROBITUSSIN [Suspect]
     Dosage: ORAL
     Route: 048
  5. ALKA-SELTZER [Suspect]
     Dosage: ORAL
     Route: 048

REACTIONS (1)
  - HAEMORRHAGIC STROKE [None]
